FAERS Safety Report 5166798-2 (Version None)
Quarter: 2006Q4

REPORT INFORMATION
  Report Type: 
  Country: None (occurrence: None)
  Receive Date: 20061204
  Receipt Date: 20061204
  Transmission Date: 20070319
  Serious: Yes (Life-Threatening, Hospitalization)
  Sender: FDA-Public Use
  Company Number: None

PATIENT
  Age: 50 Year
  Sex: Male
  Weight: 70.8 kg

DRUGS (2)
  1. ERLOTINIB 150MG [Suspect]
     Indication: PANCREATIC CARCINOMA
     Dosage: 150MG DAILY PO
     Route: 048
  2. GEMCITABINE 1 GRAM [Suspect]
     Indication: PANCREATIC CARCINOMA
     Dosage: 600 MG/M2 WEEKLY IV 7 CYCLES
     Route: 042

REACTIONS (3)
  - ALVEOLITIS [None]
  - HYPOXIA [None]
  - PNEUMONITIS [None]
